FAERS Safety Report 18868433 (Version 2)
Quarter: 2021Q2

REPORT INFORMATION
  Report Type: Spontaneous
  Country: US (occurrence: US)
  Receive Date: 20210209
  Receipt Date: 20210405
  Transmission Date: 20210717
  Serious: Yes (Death)
  Sender: FDA-Public Use
  Company Number: US-AMERICAN REGENT INC-2021000349

PATIENT
  Sex: Male

DRUGS (1)
  1. INJECTAFER [Suspect]
     Active Substance: FERRIC CARBOXYMALTOSE
     Indication: IRON DEFICIENCY ANAEMIA
     Dosage: 750 MILLIGRAM, SINGLE
     Route: 065
     Dates: start: 20201230, end: 20201230

REACTIONS (1)
  - Death [Fatal]
